FAERS Safety Report 24769149 (Version 2)
Quarter: 2024Q4

REPORT INFORMATION
  Report Type: Spontaneous
  Country: US (occurrence: US)
  Receive Date: 20241224
  Receipt Date: 20241224
  Transmission Date: 20250114
  Serious: Yes (Hospitalization)
  Sender: ROCHE
  Company Number: US-ROCHE-10000160213

PATIENT
  Sex: Male

DRUGS (1)
  1. HEMLIBRA [Suspect]
     Active Substance: EMICIZUMAB-KXWH
     Indication: Acquired haemophilia
     Dosage: MORE DOSAGE INFORMATION: INJECT 0.3ML(45MG) SUBCUTANEOUSLY EVERY 28 DAYS, START ONE WEEK AFTER 4TH L
     Route: 058

REACTIONS (3)
  - Haemarthrosis [Unknown]
  - Injury [Unknown]
  - Off label use [Unknown]
